FAERS Safety Report 23220441 (Version 1)
Quarter: 2023Q4

REPORT INFORMATION
  Report Type: Spontaneous
  Country: IT (occurrence: IT)
  Receive Date: 20231123
  Receipt Date: 20231123
  Transmission Date: 20240109
  Serious: Yes (Life-Threatening, Hospitalization, Other)
  Sender: FDA-Public Use
  Company Number: IT-TEVA-2023-IT-2947502

PATIENT
  Age: 55 Year
  Sex: Female

DRUGS (22)
  1. PREDNISONE [Suspect]
     Active Substance: PREDNISONE
     Indication: Diffuse large B-cell lymphoma
     Dosage: R-COMP REGIMEN AS FIRST LINE THERAPY
     Route: 065
     Dates: start: 2021, end: 2021
  2. VINCRISTINE [Suspect]
     Active Substance: VINCRISTINE
     Indication: Diffuse large B-cell lymphoma
     Dosage: R-COMP REGIMEN AS FIRST LINE THERAPY
     Route: 065
     Dates: start: 2021, end: 2021
  3. DOXORUBICIN [Suspect]
     Active Substance: DOXORUBICIN
     Indication: Diffuse large B-cell lymphoma
     Dosage: R-COMP REGIMEN AS FIRST LINE THERAPY
     Route: 065
     Dates: start: 2021, end: 2021
  4. CISPLATIN [Suspect]
     Active Substance: CISPLATIN
     Indication: Diffuse large B-cell lymphoma
     Dosage: R-DHAP REGIMEN AS SECOND LINE THERAPY
     Route: 065
     Dates: start: 2021, end: 2021
  5. EPIRUBICIN [Suspect]
     Active Substance: EPIRUBICIN
     Indication: Diffuse large B-cell lymphoma
     Dosage: R-IEV REGIMEN
     Route: 065
  6. ETOPOSIDE [Suspect]
     Active Substance: ETOPOSIDE
     Indication: Diffuse large B-cell lymphoma
     Dosage: R-IEV REGIMEN
     Route: 065
  7. RITUXIMAB [Suspect]
     Active Substance: RITUXIMAB
     Indication: Diffuse large B-cell lymphoma
     Dosage: R-COMP REGIMEN AS FIRST LINE THERAPY
     Route: 065
     Dates: start: 2021, end: 2021
  8. RITUXIMAB [Suspect]
     Active Substance: RITUXIMAB
     Dosage: R-DHAP REGIMEN AS SECOND LINE THERAPY
     Route: 065
     Dates: start: 2021, end: 2021
  9. RITUXIMAB [Suspect]
     Active Substance: RITUXIMAB
     Dosage: R-IEV REGIMEN
     Route: 065
  10. CYCLOPHOSPHAMIDE [Suspect]
     Active Substance: CYCLOPHOSPHAMIDE
     Indication: Diffuse large B-cell lymphoma
     Dosage: R-COMP REGIMEN AS FIRST LINE THERAPY
     Route: 065
     Dates: start: 2021, end: 2021
  11. CYTARABINE [Suspect]
     Active Substance: CYTARABINE
     Indication: Diffuse large B-cell lymphoma
     Dosage: R-DHAP REGIMEN AS SECOND LINE THERAPY
     Route: 065
     Dates: start: 2021, end: 2021
  12. IFOSFAMIDE [Suspect]
     Active Substance: IFOSFAMIDE
     Indication: Diffuse large B-cell lymphoma
     Dosage: R-IEV REGIMEN
     Route: 065
  13. AXICABTAGENE CILOLEUCEL [Suspect]
     Active Substance: AXICABTAGENE CILOLEUCEL
     Indication: Diffuse large B-cell lymphoma
     Dosage: 144 X 10^6 CD3+ T CELLS (80.8% CD19-CAR-T POSITIVE; 3,8:1 CD4:CD8 RATIO).
     Route: 050
     Dates: start: 202201
  14. METHYLPREDNISOLONE [Suspect]
     Active Substance: METHYLPREDNISOLONE
     Indication: Immune effector cell-associated neurotoxicity syndrome
     Dosage: 100 MILLIGRAM DAILY;
     Route: 065
     Dates: start: 2022
  15. METHYLPREDNISOLONE [Suspect]
     Active Substance: METHYLPREDNISOLONE
     Dosage: ADMINISTERED AT EACH LUMBAR PUNCTURE. LATER, TAPER WAS INITIATED
     Route: 065
     Dates: start: 2022
  16. DEXAMETHASONE [Suspect]
     Active Substance: DEXAMETHASONE
     Indication: Diffuse large B-cell lymphoma
     Dosage: R-DHAP REGIMEN AS SECOND LINE THERAPY
     Route: 065
     Dates: start: 2021, end: 2021
  17. DEXAMETHASONE [Suspect]
     Active Substance: DEXAMETHASONE
     Indication: Cytokine release syndrome
     Dosage: 40 MILLIGRAM DAILY; ADMINISTERED AT EACH LUMBAR PUNCTURE. LATER, TAPER WAS INITIATED
     Route: 065
  18. ACYCLOVIR [Concomitant]
     Active Substance: ACYCLOVIR
     Indication: Antiviral prophylaxis
     Dosage: 800 MILLIGRAM DAILY;
     Route: 065
     Dates: start: 2022, end: 2022
  19. LEVOFLOXACIN [Concomitant]
     Active Substance: LEVOFLOXACIN
     Indication: Antibiotic prophylaxis
     Dosage: 750 MILLIGRAM DAILY;
     Route: 065
     Dates: start: 2022, end: 2022
  20. TOCILIZUMAB [Concomitant]
     Active Substance: TOCILIZUMAB
     Indication: Cytokine release syndrome
     Dosage: RECEIVED 2 DOSES
     Route: 065
     Dates: start: 2022, end: 2022
  21. ANAKINRA [Concomitant]
     Active Substance: ANAKINRA
     Indication: Immune effector cell-associated neurotoxicity syndrome
     Dosage: 1000 MILLIGRAM DAILY;
     Route: 065
     Dates: start: 2022, end: 2022
  22. FLUDARABINE [Concomitant]
     Active Substance: FLUDARABINE PHOSPHATE
     Indication: Chemotherapy
     Route: 065
     Dates: start: 202201, end: 2022

REACTIONS (6)
  - Cytokine release syndrome [Recovering/Resolving]
  - Immune effector cell-associated neurotoxicity syndrome [Recovered/Resolved]
  - Coma [Recovering/Resolving]
  - Aspergillus infection [Recovered/Resolved]
  - Bronchopulmonary aspergillosis [Recovered/Resolved]
  - Drug ineffective [Unknown]

NARRATIVE: CASE EVENT DATE: 20220101
